FAERS Safety Report 8815551 (Version 3)
Quarter: 2012Q4

REPORT INFORMATION
  Report Type: 
  Country: US (occurrence: US)
  Receive Date: 20120928
  Receipt Date: 20121003
  Transmission Date: 20130627
  Serious: Yes (Hospitalization, Other)
  Sender: FDA-Public Use
  Company Number: US-009507513-2012SP034976

PATIENT

DRUGS (1)
  1. NUVARING [Suspect]
     Indication: CONTRACEPTION
     Dosage: UNK
     Dates: start: 20110630, end: 20111007

REACTIONS (9)
  - Pleural effusion [Unknown]
  - Pulmonary embolism [Unknown]
  - Pulmonary infarction [Unknown]
  - Cholelithiasis [Unknown]
  - Soft tissue injury [Unknown]
  - Victim of spousal abuse [Unknown]
  - Facial bones fracture [Unknown]
  - Facial bones fracture [Unknown]
  - Blood pressure decreased [Unknown]
